FAERS Safety Report 13136378 (Version 3)
Quarter: 2017Q1

REPORT INFORMATION
  Report Type: Report from Study
  Country: JP (occurrence: JP)
  Receive Date: 20170122
  Receipt Date: 20170325
  Transmission Date: 20170428
  Serious: Yes (Life-Threatening, Other)
  Sender: FDA-Public Use
  Company Number: JP-AMGEN-JPNSP2016164002

PATIENT
  Age: 80 Year
  Sex: Male

DRUGS (5)
  1. CARFILZOMIB [Suspect]
     Active Substance: CARFILZOMIB
     Indication: PLASMA CELL MYELOMA
     Dosage: 20 MG/M2 ONCE A DAY, UNK
     Route: 041
     Dates: start: 20161107, end: 20161108
  2. DEXAMETHASONE. [Concomitant]
     Active Substance: DEXAMETHASONE
     Dosage: 20 MG, QD
     Dates: start: 20161107, end: 20161107
  3. DEXAMETHASONE. [Concomitant]
     Active Substance: DEXAMETHASONE
     Dosage: 4 MG, QD
     Dates: start: 20161108, end: 20161108
  4. LENALIDOMIDE [Concomitant]
     Active Substance: LENALIDOMIDE
     Dosage: 5 MG, QD
     Dates: start: 20161107, end: 20161110
  5. ACICLOVIR [Concomitant]
     Active Substance: ACYCLOVIR
     Indication: PROPHYLAXIS
     Dosage: 200 MG, QD
     Dates: start: 20161107, end: 20161125

REACTIONS (4)
  - Sepsis [Recovered/Resolved]
  - Infusion related reaction [Recovered/Resolved]
  - Tumour lysis syndrome [Recovered/Resolved]
  - General physical health deterioration [Not Recovered/Not Resolved]

NARRATIVE: CASE EVENT DATE: 201611
